FAERS Safety Report 7185568-7 (Version None)
Quarter: 2010Q4

REPORT INFORMATION
  Report Type: 
  Country: None (occurrence: None)
  Receive Date: 20101222
  Receipt Date: 20101213
  Transmission Date: 20110411
  Serious: Yes (Other)
  Sender: FDA-Public Use
  Company Number: US-GENZYME-THYM-1001958

PATIENT

DRUGS (3)
  1. THYMOGLOBULIN [Suspect]
     Indication: HEART TRANSPLANT REJECTION
     Dosage: 150 MG, QD
     Route: 042
     Dates: start: 20100926, end: 20100930
  2. THYMOGLOBULIN [Suspect]
     Dosage: 75 MG, QD
     Route: 042
     Dates: start: 20101001, end: 20101005
  3. METHYLPREDNISOLONE [Concomitant]
     Dosage: 500 UNK, UNK

REACTIONS (2)
  - ARTHRALGIA [None]
  - WHITE BLOOD CELL COUNT DECREASED [None]
